FAERS Safety Report 6854777-6 (Version None)
Quarter: 2010Q3

REPORT INFORMATION
  Report Type: 
  Country: None (occurrence: None)
  Receive Date: 20100717
  Receipt Date: 20080110
  Transmission Date: 20110219
  Serious: No
  Sender: FDA-Public Use
  Company Number: US-PFIZER INC-2008004656

PATIENT

DRUGS (2)
  1. CHANTIX [Suspect]
  2. RISPERDAL [Concomitant]

REACTIONS (1)
  - AGITATION [None]
